FAERS Safety Report 4290121-9 (Version None)
Quarter: 2004Q1

REPORT INFORMATION
  Report Type: 
  Country: None (occurrence: None)
  Receive Date: 20040209
  Receipt Date: 20030610
  Transmission Date: 20041129
  Serious: Yes (Hospitalization)
  Sender: FDA-Public Use
  Company Number: US_000848636

PATIENT
  Age: 64 Year
  Sex: Female
  Weight: 51 kg

DRUGS (12)
  1. EVISTA [Suspect]
     Indication: OSTEOPOROSIS
     Dosage: 60MG/ 1 DAY
     Dates: start: 19980201, end: 20000814
  2. FORTEO [Suspect]
     Dates: start: 20030409
  3. HYDROCORTISONE [Concomitant]
  4. FLORINEF [Concomitant]
  5. SYNTHROID [Concomitant]
  6. MYSOLUNE (PRIMIDONE) [Concomitant]
  7. VITAMIN E [Concomitant]
  8. MULTIVITAMIN [Concomitant]
  9. POSTURE-D [Concomitant]
  10. COUMADIN [Concomitant]
  11. CORTISONE [Concomitant]
  12. PROPRANOLOL [Concomitant]

REACTIONS (2)
  - DEEP VEIN THROMBOSIS [None]
  - GINGIVAL SWELLING [None]
